FAERS Safety Report 8275087-9 (Version None)
Quarter: 2012Q2

REPORT INFORMATION
  Report Type: 
  Country: None (occurrence: None)
  Receive Date: 20120411
  Receipt Date: 20120404
  Transmission Date: 20120825
  Serious: Yes (Other)
  Sender: FDA-Public Use
  Company Number: US-GILEAD-2012-0051176

PATIENT
  Sex: Male

DRUGS (6)
  1. VALTREX [Concomitant]
     Indication: HERPES VIRUS INFECTION
     Dosage: UNK UNK, BID
     Route: 048
     Dates: start: 20110107
  2. INH [Concomitant]
     Indication: LATENT TUBERCULOSIS
     Dosage: UNK
     Route: 048
     Dates: start: 20110930
  3. VITAMIN B6 [Concomitant]
     Indication: LATENT TUBERCULOSIS
     Dosage: UNK
     Route: 048
     Dates: start: 20110930
  4. NICOTINE [Concomitant]
     Indication: EX-TOBACCO USER
     Dosage: UNK
     Dates: start: 20111025, end: 20111214
  5. COMPLERA [Suspect]
     Indication: HIV INFECTION
     Dosage: 525 MG, QD
     Route: 048
     Dates: start: 20110930, end: 20120306
  6. BACTRIM DS [Concomitant]
     Indication: ANTIFUNGAL PROPHYLAXIS
     Dosage: UNK
     Route: 048
     Dates: start: 20110621

REACTIONS (2)
  - VIRAL MUTATION IDENTIFIED [None]
  - VIROLOGIC FAILURE [None]
